FAERS Safety Report 11861753 (Version 2)
Quarter: 2016Q1

REPORT INFORMATION
  Report Type: Spontaneous
  Country: IT (occurrence: IT)
  Receive Date: 20151222
  Receipt Date: 20160122
  Transmission Date: 20160526
  Serious: Yes (Other)
  Sender: FDA-Public Use
  Company Number: IT-DEP_13284_2015

PATIENT
  Age: 86 Year
  Sex: Female

DRUGS (7)
  1. FERRO-GRAD [Concomitant]
     Active Substance: FERROUS SULFATE\FERROUS SULFATE, DRIED
     Dosage: DF
  2. ZADITEN [Concomitant]
     Active Substance: KETOTIFEN FUMARATE
     Dosage: DF
  3. PANTOPRAZOLE SODIUM. [Concomitant]
     Active Substance: PANTOPRAZOLE SODIUM
     Dosage: DF
  4. SIMVASTATINE [Concomitant]
     Active Substance: SIMVASTATIN
     Dosage: DF
  5. PALEXIA [Suspect]
     Active Substance: TAPENTADOL HYDROCHLORIDE
     Indication: BACK PAIN
     Dosage: 2 DF, 1/DAY
     Route: 048
     Dates: start: 20151111, end: 20151115
  6. LEVOCETIRIZINE HYDROCHLORIDE [Concomitant]
     Active Substance: LEVOCETIRIZINE HYDROCHLORIDE
     Dosage: DF
  7. COUMADIN [Concomitant]
     Active Substance: WARFARIN SODIUM
     Dosage: DF

REACTIONS (5)
  - Fall [Recovering/Resolving]
  - Asthenia [Recovering/Resolving]
  - Head injury [Recovering/Resolving]
  - Somnolence [Recovering/Resolving]
  - Confusional state [Recovering/Resolving]

NARRATIVE: CASE EVENT DATE: 20151115
